FAERS Safety Report 10064260 (Version 1)
Quarter: 2014Q2

REPORT INFORMATION
  Report Type: Spontaneous
  Country: US (occurrence: None)
  Receive Date: 20140407
  Receipt Date: 20140407
  Transmission Date: 20141212
  Serious: Yes (Disabling)
  Sender: FDA-Public Use
  Company Number: None

PATIENT
  Age: 49 Year
  Sex: Male
  Weight: 83.92 kg

DRUGS (1)
  1. CYMBALTA [Suspect]
     Indication: EYE BURNS
     Dosage: 1 PILL TWICE DIALY TAKNE BY MOUTH
     Route: 048
     Dates: start: 20130920, end: 20140123

REACTIONS (5)
  - Chromaturia [None]
  - Jaundice [None]
  - Rash maculo-papular [None]
  - Pyrexia [None]
  - Cholestasis [None]
